FAERS Safety Report 23103691 (Version 1)
Quarter: 2023Q4

REPORT INFORMATION
  Report Type: Spontaneous
  Country: US (occurrence: US)
  Receive Date: 20231025
  Receipt Date: 20231025
  Transmission Date: 20240110
  Serious: No
  Sender: FDA-Public Use
  Company Number: US-PFIZER INC-202300337302

PATIENT
  Age: 67 Year
  Sex: Female

DRUGS (2)
  1. NURTEC ODT [Suspect]
     Active Substance: RIMEGEPANT SULFATE
     Indication: Migraine
     Dosage: 75 MG, ALTERNATE DAY
     Route: 060
     Dates: start: 2023
  2. AJOVY [Suspect]
     Active Substance: FREMANEZUMAB-VFRM
     Indication: Migraine
     Dosage: UNKNOWN, 1 IN CARTRIDGE WITH NEEDLE, INJECT IN TUMMY OR LEG, ONCE A MONTH SHOTS
     Dates: end: 2023

REACTIONS (1)
  - Constipation [Not Recovered/Not Resolved]
